FAERS Safety Report 4613300-7 (Version None)
Quarter: 2005Q1

REPORT INFORMATION
  Report Type: 
  Country: None (occurrence: None)
  Receive Date: 20050315
  Receipt Date: 20050308
  Transmission Date: 20050727
  Serious: Yes (Disabling)
  Sender: FDA-Public Use
  Company Number: 2005GB00155

PATIENT
  Age: 81 Year
  Sex: Male
  Weight: 70 kg

DRUGS (4)
  1. TENORMIN [Suspect]
     Indication: HYPERTENSION
     Dosage: 100 MG DAILY PO
     Route: 048
     Dates: start: 20030311, end: 20050113
  2. DIFLUNISAL [Concomitant]
  3. ASPIRIN [Concomitant]
  4. ISOSORBIDE MONONITRATE [Concomitant]

REACTIONS (1)
  - BACK PAIN [None]
